FAERS Safety Report 7590535-5 (Version None)
Quarter: 2011Q3

REPORT INFORMATION
  Report Type: 
  Country: None (occurrence: None)
  Receive Date: 20110705
  Receipt Date: 20110620
  Transmission Date: 20111222
  Serious: Yes (Other)
  Sender: FDA-Public Use
  Company Number: BR-GENENTECH-294780

PATIENT
  Sex: Female
  Weight: 83 kg

DRUGS (17)
  1. ANTIPYRETIC NOS [Concomitant]
  2. BICONCOR (R) [Concomitant]
     Indication: HYPERTENSION
     Dosage: 5 MG, UNK
     Dates: start: 20050101
  3. CYCLOBENZAPRINE [Concomitant]
     Indication: MUSCLE TIGHTNESS
     Dosage: 3 MG, UNK
     Route: 048
     Dates: start: 20091219
  4. RITUXIMAB [Suspect]
     Indication: RHEUMATOID ARTHRITIS
     Dosage: 100 MG/10 ML, UNK
     Route: 065
     Dates: start: 20080305, end: 20080320
  5. CALCIUM CARBONATE [Concomitant]
     Indication: PRODUCT USED FOR UNKNOWN INDICATION
     Dosage: UNK
  6. FLUOXETINE HCL [Concomitant]
     Indication: MUSCLE TIGHTNESS
     Dosage: 15 MG, UNK
     Route: 048
     Dates: start: 20091219
  7. RITUXIMAB [Suspect]
     Dosage: 1000 MG, UNK
     Route: 042
     Dates: start: 20081001, end: 20081005
  8. FELDENE [Concomitant]
     Indication: PAIN
     Dosage: 20 MG, UNK
  9. OMEPRAZOLE [Concomitant]
     Indication: PRODUCT USED FOR UNKNOWN INDICATION
  10. RITUXIMAB [Suspect]
     Dosage: 1000 MG, UNK
     Route: 042
     Dates: start: 20090609, end: 20090623
  11. RITUXIMAB [Suspect]
     Dosage: 1000 MG, UNK
     Route: 042
     Dates: start: 20091223, end: 20100113
  12. ACETAMINOPHEN [Concomitant]
     Indication: MUSCLE TIGHTNESS
     Dosage: 500 MG, UNK
     Route: 048
     Dates: start: 20091219
  13. DIPYRONE [Concomitant]
     Indication: PRODUCT USED FOR UNKNOWN INDICATION
     Dosage: 500 MG, UNK
  14. RITUXIMAB [Suspect]
     Dosage: 1000 MG, UNK
     Route: 042
     Dates: start: 20100701, end: 20110117
  15. LORAX [Concomitant]
     Indication: PRODUCT USED FOR UNKNOWN INDICATION
     Dosage: UNK
  16. LISADOR [Concomitant]
     Indication: PAIN
     Dosage: UNK GTT, UNK
  17. CYCLOBENZAPRINE [Concomitant]
     Dosage: 4 MG, UNK
     Route: 048

REACTIONS (29)
  - FORMICATION [None]
  - EAR PRURITUS [None]
  - CATARACT [None]
  - PNEUMONIA [None]
  - NAIL DISORDER [None]
  - PARAESTHESIA [None]
  - MEDICAL DEVICE IMPLANTATION [None]
  - MALAISE [None]
  - MOUTH INJURY [None]
  - THROAT IRRITATION [None]
  - ORAL PRURITUS [None]
  - BLOOD PRESSURE FLUCTUATION [None]
  - PRURITUS [None]
  - DIZZINESS [None]
  - TOOTH DISORDER [None]
  - VULVOVAGINAL BURNING SENSATION [None]
  - WOUND [None]
  - ANAEMIA [None]
  - HEPATIC STEATOSIS [None]
  - DYSPNOEA [None]
  - CONNECTIVE TISSUE DISORDER [None]
  - HYPERHIDROSIS [None]
  - ASTHENIA [None]
  - PARAESTHESIA ORAL [None]
  - MUCOSAL DRYNESS [None]
  - COUGH [None]
  - TONGUE INJURY [None]
  - PYREXIA [None]
  - BODY HEIGHT DECREASED [None]
